FAERS Safety Report 25210839 (Version 3)
Quarter: 2025Q3

REPORT INFORMATION
  Report Type: Spontaneous
  Country: US (occurrence: US)
  Receive Date: 20250417
  Receipt Date: 20250812
  Transmission Date: 20251021
  Serious: No
  Sender: PFIZER
  Company Number: US-PFIZER INC-202500079302

PATIENT
  Age: 84 Year
  Sex: Female
  Weight: 67.4 kg

DRUGS (1)
  1. IBRANCE [Suspect]
     Active Substance: PALBOCICLIB
     Route: 048

REACTIONS (9)
  - White blood cell count increased [Unknown]
  - Red blood cell count decreased [Unknown]
  - Immature granulocyte count increased [Unknown]
  - Blood sodium decreased [Unknown]
  - Blood chloride decreased [Unknown]
  - Blood urea increased [Unknown]
  - Hypoacusis [Unknown]
  - Stomatitis [Unknown]
  - Glycosylated haemoglobin increased [Unknown]

NARRATIVE: CASE EVENT DATE: 20250403
